FAERS Safety Report 9605039 (Version 2)
Quarter: 2013Q4

REPORT INFORMATION
  Report Type: Report from Study
  Country: CA (occurrence: CA)
  Receive Date: 20131008
  Receipt Date: 20131008
  Transmission Date: 20140711
  Serious: Yes (Other)
  Sender: FDA-Public Use
  Company Number: CA-ABBVIE-12P-028-0998397-00

PATIENT
  Sex: Male
  Weight: 99.88 kg

DRUGS (10)
  1. HUMIRA [Suspect]
     Indication: RHEUMATOID ARTHRITIS
     Route: 058
     Dates: start: 20080806, end: 2011
  2. LOSEC [Concomitant]
     Indication: GASTRIC DISORDER
     Route: 048
  3. TYLENOL ARTHRITIS [Concomitant]
     Indication: RHEUMATOID ARTHRITIS
     Route: 048
  4. CELEBREX [Concomitant]
     Indication: RHEUMATOID ARTHRITIS
     Route: 048
  5. SIMVASTATIN [Concomitant]
     Indication: BLOOD CHOLESTEROL INCREASED
     Route: 048
  6. NIFEDIPINE XL [Concomitant]
     Indication: HYPERTENSION
     Route: 048
  7. APO-HYDRO [Concomitant]
     Indication: HYPERTENSION
     Route: 048
  8. APO-METOPROLOL [Concomitant]
     Indication: HYPERTENSION
     Route: 048
  9. APO-CANDESARTAN [Concomitant]
     Indication: HYPERTENSION
     Route: 048
  10. SIMPONI [Concomitant]
     Indication: PSORIATIC ARTHROPATHY
     Dates: start: 201105

REACTIONS (6)
  - Osteoarthritis [Recovered/Resolved]
  - Arthritis [Recovered/Resolved]
  - Unevaluable event [Unknown]
  - Pain in extremity [Recovering/Resolving]
  - Pain [Recovered/Resolved]
  - Drug ineffective [Unknown]
